FAERS Safety Report 7960912-9 (Version None)
Quarter: 2011Q4

REPORT INFORMATION
  Report Type: 
  Country: None (occurrence: None)
  Receive Date: 20111201
  Receipt Date: 20111201
  Transmission Date: 20120403
  Serious: Yes (Disabling)
  Sender: FDA-Public Use
  Company Number: None

PATIENT
  Age: 70 Year
  Sex: Male
  Weight: 88.4514 kg

DRUGS (1)
  1. JANUVIA [Suspect]
     Indication: DIABETES MELLITUS
     Dosage: 100 MG 1 A DAY
     Dates: start: 20100501

REACTIONS (4)
  - ABASIA [None]
  - EXOSTOSIS [None]
  - ARTHRALGIA [None]
  - PAIN IN EXTREMITY [None]
